FAERS Safety Report 12408725 (Version 1)
Quarter: 2016Q2

REPORT INFORMATION
  Report Type: Spontaneous
  Country: US (occurrence: US)
  Receive Date: 20160526
  Receipt Date: 20160526
  Transmission Date: 20160815
  Serious: No
  Sender: FDA-Public Use
  Company Number: US-PERRIGO-15US006927

PATIENT
  Age: 22 Year
  Sex: Female
  Weight: 63.49 kg

DRUGS (2)
  1. MICONAZOLE 3 COMBINATION PACK [Suspect]
     Active Substance: MICONAZOLE NITRATE
     Indication: VULVOVAGINAL MYCOTIC INFECTION
     Dosage: 200 MG, QD AT BEDTIME
     Route: 067
     Dates: start: 20150628, end: 20150630
  2. ALBUTEROL                          /00139501/ [Concomitant]
     Active Substance: ALBUTEROL
     Indication: ASTHMA
     Dosage: UNKNOWN, UNKNOWN
     Route: 065

REACTIONS (3)
  - Vulvovaginal erythema [Recovering/Resolving]
  - Vulvovaginal burning sensation [Recovering/Resolving]
  - Vulvovaginal swelling [Recovering/Resolving]

NARRATIVE: CASE EVENT DATE: 20150628
